FAERS Safety Report 8573895-8 (Version None)
Quarter: 2012Q3

REPORT INFORMATION
  Report Type: 
  Country: None (occurrence: None)
  Receive Date: 20120806
  Receipt Date: 20120430
  Transmission Date: 20120928
  Serious: No
  Sender: FDA-Public Use
  Company Number: US-GLAXOSMITHKLINE-A0975723A

PATIENT
  Age: 64 Year
  Sex: Female
  Weight: 72.3 kg

DRUGS (3)
  1. CHEMOTHERAPY [Concomitant]
  2. FLUTICASONE PROPIONATE [Suspect]
     Indication: CHRONIC OBSTRUCTIVE PULMONARY DISEASE
     Dosage: 2PUFF TWICE PER DAY
     Route: 055
     Dates: start: 20070101, end: 20120301
  3. RADIATION [Concomitant]

REACTIONS (1)
  - WEIGHT INCREASED [None]
